FAERS Safety Report 8138573-8 (Version None)
Quarter: 2012Q1

REPORT INFORMATION
  Report Type: 
  Country: None (occurrence: None)
  Receive Date: 20120213
  Receipt Date: 20120207
  Transmission Date: 20120608
  Serious: Yes (Other)
  Sender: FDA-Public Use
  Company Number: GER/GER/12/0022953

PATIENT
  Age: 25 Year
  Sex: Female
  Weight: 74 kg

DRUGS (4)
  1. ACTRAPID (INSULIN HUMAN) [Concomitant]
  2. PROTAPHANE (INSULIN HUMAN INJECTION, ISOPHANE) [Concomitant]
     Indication: DIABETES MELLITUS
  3. RISPERDAL [Suspect]
     Indication: PERSONALITY DISORDER
     Dosage: 1 MG, D, ORAL
     Route: 048
     Dates: start: 20101207, end: 20110901
  4. SERTRALINE HYDROCHLORIDE [Suspect]
     Indication: PERSONALITY DISORDER
     Dosage: 15 0MG, D, ORAL
     Route: 048

REACTIONS (3)
  - MATERNAL EXPOSURE DURING PREGNANCY [None]
  - CAESAREAN SECTION [None]
  - GESTATIONAL DIABETES [None]
